FAERS Safety Report 5292561-8 (Version None)
Quarter: 2007Q2

REPORT INFORMATION
  Report Type: 
  Country: None (occurrence: None)
  Receive Date: 20070410
  Receipt Date: 20070404
  Transmission Date: 20071010
  Serious: Yes (Other)
  Sender: FDA-Public Use
  Company Number: GB-PFIZER INC-2007027328

PATIENT
  Age: 69 Year
  Sex: Male

DRUGS (4)
  1. ARTHROTEC [Suspect]
     Route: 048
  2. TAMSULOSIN HCL [Concomitant]
     Route: 048
  3. IMIDAPRIL HYDROCHLORIDE [Concomitant]
     Route: 048
  4. TRAMADOL HCL [Concomitant]
     Route: 048

REACTIONS (9)
  - DYSPEPSIA [None]
  - EYE SWELLING [None]
  - FATIGUE [None]
  - HEADACHE [None]
  - INSOMNIA [None]
  - IRRITABILITY [None]
  - PHARYNGOLARYNGEAL PAIN [None]
  - PRURITUS [None]
  - SWELLING FACE [None]
